FAERS Safety Report 7699546-2 (Version None)
Quarter: 2011Q3

REPORT INFORMATION
  Report Type: 
  Country: None (occurrence: None)
  Receive Date: 20110821
  Receipt Date: 20110808
  Transmission Date: 20111222
  Serious: Yes (Hospitalization)
  Sender: FDA-Public Use
  Company Number: DE-BRISTOL-MYERS SQUIBB COMPANY-15936040

PATIENT
  Age: 77 Year
  Sex: Male
  Weight: 104 kg

DRUGS (2)
  1. CETUXIMAB [Suspect]
     Indication: NON-SMALL CELL LUNG CANCER
     Dosage: ACTUAL DOSE 250 MG/M2
     Route: 042
     Dates: start: 20110704
  2. GEMZAR [Suspect]
     Indication: NON-SMALL CELL LUNG CANCER
     Dosage: ACTUAL DOSE 1000 MG/M2
     Route: 042
     Dates: start: 20110704

REACTIONS (1)
  - TACHYARRHYTHMIA [None]
